FAERS Safety Report 7631744-6 (Version None)
Quarter: 2011Q3

REPORT INFORMATION
  Report Type: 
  Country: None (occurrence: None)
  Receive Date: 20110725
  Receipt Date: 20110310
  Transmission Date: 20111222
  Serious: No
  Sender: FDA-Public Use
  Company Number: US-BRISTOL-MYERS SQUIBB COMPANY-15578081

PATIENT
  Age: 76 Year
  Sex: Female

DRUGS (3)
  1. ASPIRIN [Concomitant]
  2. TOPROL-XL [Concomitant]
  3. WARFARIN SODIUM [Suspect]
     Dosage: ALSO TAKEN AS A CONMED
     Dates: start: 20101201

REACTIONS (4)
  - DIZZINESS [None]
  - VERTIGO [None]
  - INSOMNIA [None]
  - DIARRHOEA [None]
